FAERS Safety Report 10673874 (Version 1)
Quarter: 2014Q4

REPORT INFORMATION
  Report Type: Spontaneous
  Country: US (occurrence: None)
  Receive Date: 20141223
  Receipt Date: 20141223
  Transmission Date: 20150529
  Serious: No
  Sender: FDA-Public Use
  Company Number: None

PATIENT
  Age: 65 Year
  Sex: Female
  Weight: 90.72 kg

DRUGS (7)
  1. WELCHOL [Suspect]
     Active Substance: COLESEVELAM HYDROCHLORIDE
     Indication: BLOOD CHOLESTEROL
     Dosage: 1 PACKET; BY MOUTH
     Route: 048
     Dates: start: 20141128, end: 20141208
  2. WELCHOL [Suspect]
     Active Substance: COLESEVELAM HYDROCHLORIDE
     Indication: BLOOD GLUCOSE ABNORMAL
     Dosage: 1 PACKET; BY MOUTH
     Route: 048
     Dates: start: 20141128, end: 20141208
  3. LETROZOLE. [Concomitant]
     Active Substance: LETROZOLE
  4. MONTELUKAST SODIUM. [Concomitant]
     Active Substance: MONTELUKAST SODIUM
  5. SYMBICORT [Concomitant]
     Active Substance: BUDESONIDE\FORMOTEROL FUMARATE DIHYDRATE
  6. OMEGA2 [Concomitant]
  7. VITAMIN D [Concomitant]
     Active Substance: CHOLECALCIFEROL

REACTIONS (5)
  - Blister [None]
  - Pain [None]
  - Erythema [None]
  - Skin exfoliation [None]
  - Burning sensation [None]

NARRATIVE: CASE EVENT DATE: 20141206
